FAERS Safety Report 8103679 (Version 3)
Quarter: 2013Q3

REPORT INFORMATION
  Report Type: Spontaneous
  Country: GB (occurrence: GB)
  Receive Date: 20110824
  Receipt Date: 20130923
  Transmission Date: 20140515
  Serious: Yes (Death, Hospitalization)
  Sender: FDA-Public Use
  Company Number: PHFR2011GB04806

PATIENT
  Age: 39 Year
  Sex: Female

DRUGS (2)
  1. CLOZARIL [Suspect]
     Indication: SCHIZOPHRENIA
     Dosage: 150 MG/DAY
     Route: 048
     Dates: start: 20110722, end: 20110808
  2. AMISULPRIDE [Suspect]
     Dosage: 200 MG/DAY
     Route: 048

REACTIONS (11)
  - Myocarditis [Fatal]
  - Troponin T increased [Fatal]
  - C-reactive protein increased [Fatal]
  - Tachycardia [Fatal]
  - Body temperature increased [Fatal]
  - Choking [Unknown]
  - Self-induced vomiting [Unknown]
  - Urinary tract infection [Unknown]
  - Urinary incontinence [Unknown]
  - Drooling [Unknown]
  - Mental impairment [Unknown]
